FAERS Safety Report 5523147-5 (Version None)
Quarter: 2007Q4

REPORT INFORMATION
  Report Type: 
  Country: None (occurrence: None)
  Receive Date: 20071119
  Receipt Date: 20071105
  Transmission Date: 20080405
  Serious: Yes (Other)
  Sender: FDA-Public Use
  Company Number: 100#03#2007-04657

PATIENT
  Age: 37 Year
  Sex: Female

DRUGS (6)
  1. TRAMADOL HYDROCHLORIDE [Suspect]
     Indication: BACK PAIN
     Dosage: 200MG, ONCE DAILY, ORAL
     Route: 048
     Dates: start: 20070914, end: 20070926
  2. AMITRIPTYLINE (AMITRIPTYLINE) (10 MILLIGRAM) (AMITRIPTYLINE)] [Suspect]
     Indication: DRUG USE FOR UNKNOWN INDICATION
     Dosage: 2 TABLETS OF 10 MG (AT NIGHT); 3 TABLETS OF 25 MG (AT NIGHT)
  3. OXYCONTIN [Suspect]
     Indication: BACK PAIN
     Dosage: 40 MG, TWICE DAILY, ORAL
     Route: 048
     Dates: start: 20060301, end: 20070901
  4. DIAZEPAM [Concomitant]
  5. GABAPENTIN (GABAPENTIN) GABAPENTIN) [Concomitant]
  6. MELOXICAM (MELOXICAM) (MELOXICAM) [Concomitant]

REACTIONS (3)
  - AFFECT LABILITY [None]
  - PARANOIA [None]
  - WITHDRAWAL SYNDROME [None]
